FAERS Safety Report 5024659-3 (Version None)
Quarter: 2006Q2

REPORT INFORMATION
  Report Type: 
  Country: None (occurrence: None)
  Receive Date: 20060613
  Receipt Date: 20060531
  Transmission Date: 20061013
  Serious: Yes (Other)
  Sender: FDA-Public Use
  Company Number: US-ROCHE-450334

PATIENT
  Age: 50 Year
  Sex: Female

DRUGS (2)
  1. PEGASYS [Suspect]
     Route: 058
     Dates: start: 20051014, end: 20060401
  2. COPEGUS [Suspect]
     Route: 048
     Dates: start: 20051014, end: 20060401

REACTIONS (1)
  - RENAL CYST [None]
